FAERS Safety Report 8823471 (Version 1)
Quarter: 2012Q4

REPORT INFORMATION
  Report Type: 
  Country: US (occurrence: US)
  Receive Date: 20121003
  Receipt Date: 20121003
  Transmission Date: 20130627
  Serious: Yes (Hospitalization, Other)
  Sender: FDA-Public Use
  Company Number: US-MERCK-1210USA000869

PATIENT
  Age: 74 Year
  Sex: Male

DRUGS (3)
  1. JANUVIA [Suspect]
     Route: 048
  2. METFORMIN HYDROCHLORIDE [Suspect]
     Route: 048
  3. GLYBURIDE [Suspect]
     Route: 048

REACTIONS (3)
  - Drug ineffective [Unknown]
  - Pneumonia [Unknown]
  - Blood glucose increased [Unknown]
